FAERS Safety Report 10184828 (Version 2)
Quarter: 2014Q2

REPORT INFORMATION
  Report Type: Spontaneous
  Country: US (occurrence: None)
  Receive Date: 20140519
  Receipt Date: 20140630
  Transmission Date: 20141212
  Serious: Yes (Other)
  Sender: FDA-Public Use
  Company Number: 2014P1004134

PATIENT
  Age: 16 Year
  Sex: Male

DRUGS (2)
  1. MYORISAN [Suspect]
     Indication: ACNE
     Dosage: 40 MG, 1X/DAY, ORAL
     Route: 048
     Dates: start: 20140416, end: 20140506
  2. AVAR CLEANSER [Concomitant]

REACTIONS (2)
  - Depression [None]
  - Suicidal ideation [None]
